FAERS Safety Report 24437042 (Version 1)
Quarter: 2024Q4

REPORT INFORMATION
  Report Type: Spontaneous
  Country: US (occurrence: None)
  Receive Date: 20241011
  Receipt Date: 20241011
  Transmission Date: 20250115
  Serious: No
  Sender: Public
  Company Number: None

PATIENT
  Age: 38 Year
  Sex: Female

DRUGS (1)
  1. COSENTYX [Suspect]
     Active Substance: SECUKINUMAB
     Indication: Hidradenitis
     Dosage: OTHER FREQUENCY : Q4WEEKS;?
     Route: 058
     Dates: start: 20240819, end: 20240911

REACTIONS (4)
  - Therapy cessation [None]
  - Constipation [None]
  - Abdominal distension [None]
  - Gastritis [None]

NARRATIVE: CASE EVENT DATE: 20240820
